FAERS Safety Report 4952889-5 (Version None)
Quarter: 2006Q1

REPORT INFORMATION
  Report Type: 
  Country: None (occurrence: None)
  Receive Date: 20060324
  Receipt Date: 20060314
  Transmission Date: 20060701
  Serious: Yes (Other)
  Sender: FDA-Public Use
  Company Number: GB-AVENTIS-200612598GDDC

PATIENT
  Sex: Male

DRUGS (2)
  1. ARAVA [Suspect]
     Indication: RHEUMATOID ARTHRITIS
     Route: 048
     Dates: start: 20051101
  2. PREDNISOLONE [Concomitant]
     Route: 048

REACTIONS (5)
  - DYSPNOEA [None]
  - PROSTATE CANCER [None]
  - RASH [None]
  - SKIN IRRITATION [None]
  - TENDON DISORDER [None]
